FAERS Safety Report 8849837 (Version 1)
Quarter: 2012Q4

REPORT INFORMATION
  Report Type: 
  Country: US (occurrence: US)
  Receive Date: 20121019
  Receipt Date: 20121019
  Transmission Date: 20130627
  Serious: Yes (Other)
  Sender: FDA-Public Use
  Company Number: US-ELI_LILLY_AND_COMPANY-US201210003472

PATIENT
  Sex: Male

DRUGS (2)
  1. HUMALOG 50% LISPRO, 50% NPL [Suspect]
     Indication: TYPE 2 DIABETES MELLITUS
     Dosage: UNK, unknown
  2. HUMALOG 50% LISPRO, 50% NPL [Suspect]
     Dosage: UNK UNK, other

REACTIONS (1)
  - Cerebrovascular accident [Unknown]
